FAERS Safety Report 17601801 (Version 1)
Quarter: 2020Q1

REPORT INFORMATION
  Report Type: Spontaneous
  Country: AU (occurrence: AU)
  Receive Date: 20200331
  Receipt Date: 20200331
  Transmission Date: 20200409
  Serious: Yes (Other)
  Sender: FDA-Public Use
  Company Number: AU-BEH-2020115063

PATIENT
  Age: 48 Year
  Sex: Male

DRUGS (3)
  1. PRIVIGEN [Suspect]
     Active Substance: HUMAN IMMUNOGLOBULIN G
     Dosage: UNK
     Route: 042
     Dates: start: 20191106, end: 20191106
  2. PRIVIGEN [Suspect]
     Active Substance: HUMAN IMMUNOGLOBULIN G
     Indication: RENAL TRANSPLANT
     Dosage: UNK
     Route: 042
     Dates: start: 20191106, end: 20191106
  3. PRIVIGEN [Suspect]
     Active Substance: HUMAN IMMUNOGLOBULIN G
     Indication: TRANSPLANT REJECTION
     Dosage: UNK
     Route: 042
     Dates: start: 20191106, end: 20191106

REACTIONS (7)
  - Urticaria [Recovered/Resolved]
  - Throat irritation [Recovered/Resolved]
  - Cough [Recovered/Resolved]
  - Hypoxia [Recovered/Resolved]
  - Anaphylactic reaction [Recovered/Resolved]
  - No adverse event [Recovered/Resolved]
  - Product use in unapproved indication [Recovered/Resolved]

NARRATIVE: CASE EVENT DATE: 20191106
